FAERS Safety Report 5309360-0 (Version None)
Quarter: 2007Q2

REPORT INFORMATION
  Report Type: 
  Country: None (occurrence: None)
  Receive Date: 20070425
  Receipt Date: 20070425
  Transmission Date: 20071010
  Serious: No
  Sender: FDA-Public Use
  Company Number: None

PATIENT

DRUGS (2)
  1. AREDIA [Suspect]
     Indication: WEGENER'S GRANULOMATOSIS
     Dosage: IV
     Route: 042
  2. STEROID THERAPY [Suspect]

REACTIONS (1)
  - IMPAIRED HEALING [None]
